FAERS Safety Report 9812997 (Version 1)
Quarter: 2014Q1

REPORT INFORMATION
  Report Type: Spontaneous
  Country: US (occurrence: None)
  Receive Date: 20140109
  Receipt Date: 20140109
  Transmission Date: 20141002
  Serious: Yes (Disabling)
  Sender: FDA-Public Use
  Company Number: None

PATIENT
  Age: 51 Year
  Sex: Female
  Weight: 99.79 kg

DRUGS (2)
  1. VANCOMYCIN [Suspect]
     Indication: HAEMATOMA
     Route: 048
  2. VANCOMYCIN [Suspect]
     Indication: INFECTION
     Route: 048

REACTIONS (2)
  - Deafness [None]
  - Nerve injury [None]
